FAERS Safety Report 4856595-7 (Version None)
Quarter: 2005Q4

REPORT INFORMATION
  Report Type: 
  Country: None (occurrence: None)
  Receive Date: 20051219
  Receipt Date: 20050106
  Transmission Date: 20060501
  Serious: No
  Sender: FDA-Public Use
  Company Number: US-GLAXOSMITHKLINE-A0539619A

PATIENT
  Age: 40 Year

DRUGS (6)
  1. NICODERM CQ [Suspect]
     Dates: start: 20041208
  2. ABILIFY [Concomitant]
  3. TOPAMAX [Concomitant]
  4. DEPAKOTE [Concomitant]
  5. ARTHROTEC [Concomitant]
  6. ATENOLOL [Concomitant]

REACTIONS (5)
  - ABNORMAL DREAMS [None]
  - HEADACHE [None]
  - INSOMNIA [None]
  - OEDEMA PERIPHERAL [None]
  - PAIN IN EXTREMITY [None]
